FAERS Safety Report 7936802-4 (Version None)
Quarter: 2011Q4

REPORT INFORMATION
  Report Type: 
  Country: None (occurrence: None)
  Receive Date: 20111123
  Receipt Date: 20111121
  Transmission Date: 20120403
  Serious: Yes (Other)
  Sender: FDA-Public Use
  Company Number: CN-BAYER-2011-111765

PATIENT
  Age: 39 Year
  Sex: Male

DRUGS (1)
  1. KOGENATE FS [Suspect]
     Indication: HAEMOPHILIA
     Dosage: 9 BRANCHS ONE WEEK
     Dates: start: 20100501

REACTIONS (2)
  - MOUTH ULCERATION [None]
  - OTITIS MEDIA [None]
